FAERS Safety Report 6074171-8 (Version None)
Quarter: 2009Q1

REPORT INFORMATION
  Report Type: 
  Country: None (occurrence: None)
  Receive Date: 20090211
  Receipt Date: 20090210
  Transmission Date: 20090719
  Serious: Yes (Other)
  Sender: FDA-Public Use
  Company Number: US-RB-009416-09

PATIENT
  Age: 53 Year
  Sex: Female

DRUGS (4)
  1. SUBOXONE [Suspect]
     Route: 060
     Dates: start: 20090203, end: 20090206
  2. SUBOXONE [Suspect]
     Route: 060
     Dates: start: 20090207
  3. KLONOPIN [Suspect]
     Indication: ANXIETY
     Dosage: DOSE UNKNOWN.
     Dates: start: 20090203
  4. INDERAL [Concomitant]
     Dosage: DOSE UNKNOWN

REACTIONS (1)
  - LOSS OF CONSCIOUSNESS [None]
